FAERS Safety Report 11490424 (Version 1)
Quarter: 2015Q3

REPORT INFORMATION
  Report Type: Spontaneous
  Country: US (occurrence: US)
  Receive Date: 20150910
  Receipt Date: 20150910
  Transmission Date: 20151125
  Serious: No
  Sender: FDA-Public Use
  Company Number: US-TEVA-569627USA

PATIENT
  Age: 50 Year
  Sex: Female

DRUGS (2)
  1. DULOXETINE. [Suspect]
     Active Substance: DULOXETINE
     Indication: BIPOLAR DISORDER
     Dates: start: 20150504, end: 20150523
  2. DULOXETINE. [Suspect]
     Active Substance: DULOXETINE
     Indication: POST-TRAUMATIC STRESS DISORDER

REACTIONS (7)
  - Disturbance in attention [Recovered/Resolved]
  - Anger [Recovered/Resolved]
  - Dermatitis acneiform [Recovered/Resolved]
  - Skin disorder [Recovered/Resolved]
  - Frustration [Recovered/Resolved]
  - Activities of daily living impaired [Recovered/Resolved]
  - Skin exfoliation [Recovered/Resolved]
